FAERS Safety Report 6587117-0 (Version None)
Quarter: 2010Q1

REPORT INFORMATION
  Report Type: 
  Country: None (occurrence: None)
  Receive Date: 20100204
  Receipt Date: 20100122
  Transmission Date: 20100710
  Serious: Yes (Hospitalization)
  Sender: FDA-Public Use
  Company Number: 230279J10USA

PATIENT
  Age: 52 Year
  Sex: Female
  Weight: 110 kg

DRUGS (7)
  1. REBIF [Suspect]
     Indication: MULTIPLE SCLEROSIS
     Dosage: 44 MCG, 3 IN 1 WEEKS; 44 MCG, 3 IN 1 WEEKS, SUBCUTANEOUS; 22 MCG, 3 IN 1 WEEKS, SUBCUTANEOUS
     Route: 058
     Dates: start: 20000101, end: 20030101
  2. NEURONTIN [Concomitant]
  3. DETROL LA [Concomitant]
  4. TOPAMAX [Concomitant]
  5. LYRICA [Concomitant]
  6. MICARDIS [Concomitant]
  7. COLACE (DOCUSATE SODIUM) [Concomitant]

REACTIONS (5)
  - CALCINOSIS [None]
  - CONDITION AGGRAVATED [None]
  - EXOSTOSIS [None]
  - HYPOAESTHESIA [None]
  - POSTOPERATIVE FEVER [None]
